FAERS Safety Report 21002154 (Version 2)
Quarter: 2022Q2

REPORT INFORMATION
  Report Type: Report from Study
  Country: US (occurrence: US)
  Receive Date: 20220624
  Receipt Date: 20220629
  Transmission Date: 20220721
  Serious: Yes (Other)
  Sender: FDA-Public Use
  Company Number: US-BIOGEN-2022BI01121351

PATIENT
  Sex: Female

DRUGS (7)
  1. VUMERITY [Suspect]
     Active Substance: DIROXIMEL FUMARATE
     Indication: Multiple sclerosis
     Route: 048
     Dates: start: 202203
  2. VUMERITY [Suspect]
     Active Substance: DIROXIMEL FUMARATE
     Route: 065
     Dates: start: 20220302, end: 20220413
  3. VUMERITY [Suspect]
     Active Substance: DIROXIMEL FUMARATE
     Dosage: FOR 7 DAYS
     Route: 048
     Dates: start: 20220314, end: 202203
  4. GABAPENTIN [Concomitant]
     Active Substance: GABAPENTIN
     Indication: Product used for unknown indication
     Route: 065
  5. VITAMIN B12 [Concomitant]
     Active Substance: CYANOCOBALAMIN
     Indication: Product used for unknown indication
     Route: 065
  6. VITAMIN C [Concomitant]
     Active Substance: ASCORBIC ACID
     Indication: Product used for unknown indication
     Route: 065
  7. IRON [Concomitant]
     Active Substance: IRON
     Indication: Product used for unknown indication
     Route: 065

REACTIONS (9)
  - Uterine leiomyoma [Recovered/Resolved]
  - Fatigue [Unknown]
  - Asthenia [Unknown]
  - Nasopharyngitis [Unknown]
  - Iron deficiency anaemia [Unknown]
  - Infection [Not Recovered/Not Resolved]
  - Urticaria [Unknown]
  - Hot flush [Unknown]
  - Hypersensitivity [Unknown]

NARRATIVE: CASE EVENT DATE: 20220101
